FAERS Safety Report 21780984 (Version 2)
Quarter: 2023Q1

REPORT INFORMATION
  Report Type: Spontaneous
  Country: LB (occurrence: LB)
  Receive Date: 20221227
  Receipt Date: 20230103
  Transmission Date: 20230418
  Serious: Yes (Death, Hospitalization, Other)
  Sender: FDA-Public Use
  Company Number: LB-ALKEM LABORATORIES LIMITED-LB-ALKEM-2022-14519

PATIENT
  Age: 33 Year
  Sex: Female
  Weight: 70 kg

DRUGS (1)
  1. LIDOCAINE [Suspect]
     Active Substance: LIDOCAINE
     Indication: Anaesthesia
     Dosage: 50 ML LIDOCAINE 2 PERCENT (20 MG/ML) (TOTAL DOSE OF LIDOCAINE EQUAL TO 5000 MG)
     Route: 058

REACTIONS (10)
  - Toxicity to various agents [Fatal]
  - Cardiac arrest [Fatal]
  - Brain oedema [Unknown]
  - Generalised tonic-clonic seizure [Unknown]
  - Brain injury [Unknown]
  - Pneumonitis aspiration [Unknown]
  - Loss of consciousness [Unknown]
  - Electrolyte imbalance [Unknown]
  - Nosocomial infection [Unknown]
  - Septic shock [Unknown]
